FAERS Safety Report 24338888 (Version 4)
Quarter: 2024Q4

REPORT INFORMATION
  Report Type: Spontaneous
  Country: US (occurrence: US)
  Receive Date: 20240919
  Receipt Date: 20241122
  Transmission Date: 20250115
  Serious: No
  Sender: PFIZER
  Company Number: US-PFIZER INC-202400256409

PATIENT
  Age: 5 Year
  Sex: Male

DRUGS (2)
  1. GENOTROPIN [Suspect]
     Active Substance: SOMATROPIN
     Indication: Short stature
     Dosage: 0.7 MG, DAILY
     Dates: start: 20240904
  2. FLOVENT [Concomitant]
     Active Substance: FLUTICASONE PROPIONATE
     Dosage: EVERYDAY AND TWICE A DAY AND TWO PUFFS A TIME

REACTIONS (4)
  - Poor quality product administered [Unknown]
  - Device leakage [Unknown]
  - Device failure [Unknown]
  - Product temperature excursion issue [Unknown]
